FAERS Safety Report 8797618 (Version 1)
Quarter: 2012Q4

REPORT INFORMATION
  Report Type: Report from Study
  Country: US (occurrence: US)
  Receive Date: 20120920
  Receipt Date: 20120920
  Transmission Date: 20130627
  Serious: Yes (Hospitalization)
  Sender: FDA-Public Use
  Company Number: US-JNJFOC-20120906375

PATIENT
  Sex: Male
  Weight: 117.94 kg

DRUGS (9)
  1. STELARA [Suspect]
     Indication: PSORIASIS
     Route: 058
     Dates: start: 2011
  2. FISH OIL [Concomitant]
     Route: 048
  3. ASPIRIN [Concomitant]
     Route: 048
  4. NEXIUM [Concomitant]
     Indication: GASTRIC DISORDER
     Route: 048
  5. PRAVASTATIN [Concomitant]
     Route: 048
  6. LISINOPRIL [Concomitant]
     Route: 048
  7. ATENOLOL CHLORTHALIDONE [Concomitant]
     Dosage: 50/25 mg 1 1 day oral
     Route: 048
  8. REGLAN [Concomitant]
     Indication: GASTRIC DISORDER
     Route: 048
  9. GLYBURIDE/METFORMIN [Concomitant]
     Indication: DIABETES MELLITUS
     Route: 048

REACTIONS (4)
  - Coronary artery occlusion [Unknown]
  - Prostatic specific antigen increased [Unknown]
  - Prostate cancer [Unknown]
  - Blood glucose increased [Unknown]
